FAERS Safety Report 4348240-4 (Version None)
Quarter: 2004Q2

REPORT INFORMATION
  Report Type: 
  Country: None (occurrence: None)
  Receive Date: 20040422
  Receipt Date: 20040419
  Transmission Date: 20050107
  Serious: Yes (Disabling)
  Sender: FDA-Public Use
  Company Number: 2004CG00090

PATIENT
  Age: 65 Year
  Sex: Male

DRUGS (2)
  1. MARCAINE [Suspect]
     Indication: ANAESTHESIA
     Dates: start: 20020206, end: 20020206
  2. XYLOCAINE [Suspect]
     Indication: ANAESTHESIA
     Dates: start: 20020206, end: 20020206

REACTIONS (3)
  - ANAESTHETIC COMPLICATION [None]
  - CATARACT OPERATION COMPLICATION [None]
  - DIPLOPIA [None]
